FAERS Safety Report 10219806 (Version 2)
Quarter: 2014Q2

REPORT INFORMATION
  Report Type: Report from Study
  Country: CL (occurrence: CL)
  Receive Date: 20140605
  Receipt Date: 20140609
  Transmission Date: 20141212
  Serious: Yes (Hospitalization)
  Sender: FDA-Public Use
  Company Number: PHHY2014CL069010

PATIENT
  Age: 51 Year
  Sex: Female

DRUGS (1)
  1. LEPONEX / CLOZARIL (CLOZAPINE) [Suspect]
     Dosage: 50 MG, BID
     Dates: start: 20140512

REACTIONS (1)
  - General physical health deterioration [Not Recovered/Not Resolved]
